FAERS Safety Report 15051417 (Version 2)
Quarter: 2018Q3

REPORT INFORMATION
  Report Type: Spontaneous
  Country: CA (occurrence: CA)
  Receive Date: 20180622
  Receipt Date: 20180710
  Transmission Date: 20181010
  Serious: Yes (Hospitalization, Other)
  Sender: FDA-Public Use
  Company Number: CA-SA-2018SA156071

PATIENT
  Sex: Female

DRUGS (4)
  1. PERINDOPRIL [Concomitant]
     Active Substance: PERINDOPRIL
  2. ALEMTUZUMAB [Suspect]
     Active Substance: ALEMTUZUMAB
     Route: 041
  3. RANITIDINE. [Concomitant]
     Active Substance: RANITIDINE
  4. PREDNISONE. [Concomitant]
     Active Substance: PREDNISONE
     Dosage: 1 MG/KG, QD

REACTIONS (11)
  - Asthenia [Unknown]
  - Cytopenia [Unknown]
  - Leukopenia [Unknown]
  - Autoimmune haemolytic anaemia [Unknown]
  - Jaundice [Unknown]
  - Pruritus [Unknown]
  - Neutrophil count decreased [Unknown]
  - Autoimmune disorder [Unknown]
  - Haemoglobin decreased [Unknown]
  - White blood cell count abnormal [Unknown]
  - Anaemia [Unknown]
